FAERS Safety Report 8451207-8 (Version None)
Quarter: 2012Q2

REPORT INFORMATION
  Report Type: 
  Country: None (occurrence: None)
  Receive Date: 20120620
  Receipt Date: 20120313
  Transmission Date: 20120825
  Serious: No
  Sender: FDA-Public Use
  Company Number: US-VERTEX PHARMACEUTICALS INC.-AE-2011-004853

PATIENT
  Sex: Male
  Weight: 68.1 kg

DRUGS (6)
  1. INCIVEK [Suspect]
     Indication: HEPATITIS C
     Route: 048
     Dates: start: 20111207, end: 20120101
  2. PEGASYS [Concomitant]
     Indication: HEPATITIS C
     Route: 058
     Dates: start: 20111207
  3. RIBASPHERE [Concomitant]
     Indication: HEPATITIS C
     Route: 048
     Dates: start: 20111207
  4. LISINOPRIL [Concomitant]
  5. OXYCODONE HCL [Concomitant]
  6. CELEXA [Concomitant]

REACTIONS (5)
  - RASH ERYTHEMATOUS [None]
  - CONSTIPATION [None]
  - PNEUMONIA [None]
  - INSOMNIA [None]
  - PRURITUS GENERALISED [None]
